FAERS Safety Report 6882726-3 (Version None)
Quarter: 2010Q3

REPORT INFORMATION
  Report Type: 
  Country: None (occurrence: None)
  Receive Date: 20100729
  Receipt Date: 20100719
  Transmission Date: 20110219
  Serious: Yes (Hospitalization, Other)
  Sender: FDA-Public Use
  Company Number: NL-ROCHE-716562

PATIENT
  Age: 64 Year
  Sex: Male

DRUGS (3)
  1. CAPECITABINE [Suspect]
     Indication: GASTRIC CANCER
     Dosage: PREOPERATIVE: 3 CYCLES
     Route: 065
  2. EPIRUBICIN [Suspect]
     Indication: GASTRIC CANCER
     Dosage: PREOPERATIVE: 3 CYCLES
     Route: 065
  3. CISPLATIN [Suspect]
     Indication: GASTRIC CANCER
     Dosage: PREOPERATIVE: 3 CYCLES
     Route: 065

REACTIONS (8)
  - ABDOMINAL COMPARTMENT SYNDROME [None]
  - DIARRHOEA [None]
  - DYSPNOEA [None]
  - GASTRIC HAEMORRHAGE [None]
  - GASTRIC PERFORATION [None]
  - HAEMATEMESIS [None]
  - MALAISE [None]
  - TUMOUR NECROSIS [None]
